FAERS Safety Report 20863155 (Version 2)
Quarter: 2022Q3

REPORT INFORMATION
  Report Type: Spontaneous
  Country: CN (occurrence: CN)
  Receive Date: 20220523
  Receipt Date: 20220921
  Transmission Date: 20221026
  Serious: No
  Sender: FDA-Public Use
  Company Number: CN-PFIZER INC-202200713878

PATIENT
  Age: 75 Year
  Sex: Male
  Weight: 68 kg

DRUGS (1)
  1. NIRMATRELVIR\RITONAVIR [Suspect]
     Active Substance: NIRMATRELVIR\RITONAVIR
     Indication: COVID-19 treatment
     Dosage: 400 MG, 2X/DAY (NIRMATRELVIR /RITONAVIR 300/100MG BID)
     Route: 048
     Dates: start: 20220405, end: 20220412

REACTIONS (3)
  - Diarrhoea [Recovering/Resolving]
  - Incorrect product administration duration [Unknown]
  - Product use issue [Unknown]

NARRATIVE: CASE EVENT DATE: 20220405
